FAERS Safety Report 21033677 (Version 1)
Quarter: 2022Q2

REPORT INFORMATION
  Report Type: Spontaneous
  Country: US (occurrence: None)
  Receive Date: 20220630
  Receipt Date: 20220630
  Transmission Date: 20220721
  Serious: Yes (Hospitalization)
  Sender: FDA-Public Use
  Company Number: None

PATIENT
  Sex: Male

DRUGS (7)
  1. PIRFENIDONE [Suspect]
     Active Substance: PIRFENIDONE
     Indication: Pulmonary fibrosis
     Dosage: RX1: DAYS 1-7: TAKE 1 TABLET BY MOUTH THREE TIMES DAILY WITH MEALS, DAYS 8-14: TAKE 2 TABLETS BY?MOU
     Route: 048
     Dates: start: 20220609
  2. ASPIRIN [Concomitant]
     Active Substance: ASPIRIN
  3. FLOMAX [Concomitant]
  4. GABAPENTIN [Concomitant]
     Active Substance: GABAPENTIN
  5. LIPITOR [Concomitant]
     Active Substance: ATORVASTATIN CALCIUM
  6. METOPROL TAR [Concomitant]
  7. TEMAZEPAM [Concomitant]

REACTIONS (2)
  - Unevaluable event [None]
  - Product dose omission issue [None]
